FAERS Safety Report 4815940-9 (Version None)
Quarter: 2005Q4

REPORT INFORMATION
  Report Type: 
  Country: None (occurrence: None)
  Receive Date: 20051031
  Receipt Date: 20051019
  Transmission Date: 20060501
  Serious: Yes (Other)
  Sender: FDA-Public Use
  Company Number: JP-SANOFI-SYNTHELABO-A01200507322

PATIENT
  Age: 57 Year
  Sex: Female

DRUGS (8)
  1. OXALIPLATIN [Suspect]
     Indication: COLON CANCER
     Route: 042
     Dates: start: 20051015, end: 20051015
  2. FLUOROURACIL [Suspect]
     Indication: COLON CANCER
     Dosage: 400 MG/M2, 600 MG/M2
     Route: 042
     Dates: start: 20051015, end: 20051016
  3. ISOVORIN [Suspect]
     Indication: COLON CANCER
     Dates: start: 20051015, end: 20051015
  4. KYTRIL [Concomitant]
  5. ATARAX [Concomitant]
  6. NORVASC [Concomitant]
  7. PRIMPERAN INJ [Concomitant]
  8. GASTER [Concomitant]

REACTIONS (5)
  - CARDIAC FAILURE [None]
  - CONVULSION [None]
  - DEPRESSED LEVEL OF CONSCIOUSNESS [None]
  - HYPERAMMONAEMIA [None]
  - RENAL FAILURE ACUTE [None]
